FAERS Safety Report 4910488-5 (Version None)
Quarter: 2006Q1

REPORT INFORMATION
  Report Type: 
  Country: None (occurrence: None)
  Receive Date: 20060209
  Receipt Date: 20060130
  Transmission Date: 20060701
  Serious: Yes (Other)
  Sender: FDA-Public Use
  Company Number: BR-2006000758

PATIENT
  Age: 25 Year
  Sex: Female
  Weight: 52 kg

DRUGS (1)
  1. YASMIN [Suspect]
     Dosage: 1 TAB (S), ORAL
     Route: 048
     Dates: start: 20030101

REACTIONS (5)
  - CONVULSION [None]
  - EMOTIONAL DISTRESS [None]
  - HALLUCINATION [None]
  - NIGHTMARE [None]
  - SYNCOPE [None]
